FAERS Safety Report 6339653-X (Version None)
Quarter: 2009Q3

REPORT INFORMATION
  Report Type: 
  Country: None (occurrence: None)
  Receive Date: 20090903
  Receipt Date: 20090825
  Transmission Date: 20100115
  Serious: Yes (Hospitalization)
  Sender: FDA-Public Use
  Company Number: JP-ABBOTT-09P-087-0594438-00

PATIENT
  Age: 70 Year
  Sex: Male

DRUGS (6)
  1. CLARITHROMYCIN [Suspect]
     Indication: HELICOBACTER INFECTION
     Dosage: 1 CARD (0.5 CARD, 2 IN 1 D)
     Route: 048
     Dates: start: 20090722, end: 20090722
  2. CLARITHROMYCIN [Suspect]
     Dosage: 1 CARD (0.5 CARD, 2 IN 1 D)
     Route: 048
     Dates: start: 20090723, end: 20090728
  3. LANSOPRAZOLE [Concomitant]
     Indication: HELICOBACTER INFECTION
     Dosage: 1 CARD (0.5 CARD, 2 IN 1 D)
     Route: 048
     Dates: start: 20090722, end: 20090722
  4. LANSOPRAZOLE [Concomitant]
     Dosage: 1 CARD (0.5 CARD, 2 IN 1 D)
     Route: 048
     Dates: start: 20090723, end: 20090728
  5. AMOXICILLIN [Concomitant]
     Indication: HELICOBACTER INFECTION
     Dosage: 1 CARD (0.5 CARD, 2 IN 1 D)
     Route: 048
     Dates: start: 20090722, end: 20090722
  6. AMOXICILLIN [Concomitant]
     Dosage: 1 CARD (0.5 CARD, 2 IN 1 D)
     Route: 048
     Dates: start: 20090723, end: 20090728

REACTIONS (1)
  - RHABDOMYOLYSIS [None]
